FAERS Safety Report 6100578-6 (Version None)
Quarter: 2009Q1

REPORT INFORMATION
  Report Type: 
  Country: None (occurrence: None)
  Receive Date: 20090227
  Receipt Date: 20090227
  Transmission Date: 20090719
  Serious: Yes (Hospitalization)
  Sender: FDA-Public Use
  Company Number: None

PATIENT
  Age: 70 Year
  Sex: Male
  Weight: 70.3075 kg

DRUGS (1)
  1. PLAVIX [Suspect]
     Indication: CORONARY ARTERY DISEASE
     Dosage: DAILY PO
     Route: 048
     Dates: start: 20040301, end: 20060301

REACTIONS (6)
  - DIVERTICULITIS [None]
  - HAEMATURIA [None]
  - HAEMORRHAGE [None]
  - HAEMORRHOIDS [None]
  - KIDNEY INFECTION [None]
  - SCRATCH [None]
